FAERS Safety Report 4412607-6 (Version None)
Quarter: 2004Q2

REPORT INFORMATION
  Report Type: 
  Country: None (occurrence: None)
  Receive Date: 20040630
  Receipt Date: 20040310
  Transmission Date: 20050107
  Serious: No
  Sender: FDA-Public Use
  Company Number: 04P-163-0253167-00

PATIENT
  Age: 82 Year
  Sex: Female
  Weight: 62.1428 kg

DRUGS (10)
  1. HUMIRA [Suspect]
     Indication: RHEUMATOID ARTHRITIS
     Dosage: 40 MG, 1 IN 2 WK, SUBCUTANEOUS
     Route: 058
     Dates: start: 20040308
  2. BENICAR [Concomitant]
  3. AMLODIPINE [Concomitant]
  4. METOPROLOL TARTRATE [Concomitant]
  5. DYAZIDE [Concomitant]
  6. FOLIC ACID [Concomitant]
  7. RANITIDINE HYDROCHLORIDE [Concomitant]
  8. SUCRALFATE [Concomitant]
  9. TIMOLOL MALEATE [Concomitant]
  10. TORSEMIDE [Concomitant]

REACTIONS (4)
  - BLOOD PRESSURE INCREASED [None]
  - CONDITION AGGRAVATED [None]
  - HEADACHE [None]
  - HYPOAESTHESIA [None]
